FAERS Safety Report 8880110 (Version 1)
Quarter: 2012Q4

REPORT INFORMATION
  Report Type: 
  Country: US (occurrence: US)
  Receive Date: 20121031
  Receipt Date: 20121031
  Transmission Date: 20130627
  Serious: Yes (Hospitalization)
  Sender: FDA-Public Use
  Company Number: US-MYLANLABS-2012S1021985

PATIENT
  Age: 19 Year
  Sex: Female

DRUGS (1)
  1. CYSTAGON CAPSULES [Suspect]
     Indication: AMINO ACID METABOLISM DISORDER
     Route: 048
     Dates: start: 20020116, end: 201203

REACTIONS (2)
  - Renal transplant [Not Recovered/Not Resolved]
  - Treatment noncompliance [Recovered/Resolved with Sequelae]
